FAERS Safety Report 6042489-0 (Version None)
Quarter: 2009Q1

REPORT INFORMATION
  Report Type: 
  Country: None (occurrence: None)
  Receive Date: 20090116
  Receipt Date: 20090107
  Transmission Date: 20090719
  Serious: Yes (Other)
  Sender: FDA-Public Use
  Company Number: US-AMGEN-US323164

PATIENT
  Sex: Male
  Weight: 68.6 kg

DRUGS (4)
  1. VECTIBIX [Suspect]
     Indication: COLORECTAL CANCER
     Route: 042
     Dates: start: 20081125
  2. FAMOTIDINE [Concomitant]
  3. DIPHENHYDRAMINE HCL [Concomitant]
  4. TYLENOL (CAPLET) [Concomitant]

REACTIONS (4)
  - CLOSTRIDIAL INFECTION [None]
  - PYREXIA [None]
  - STAPHYLOCOCCAL SEPSIS [None]
  - URINARY TRACT INFECTION ENTEROCOCCAL [None]
